FAERS Safety Report 12719639 (Version 2)
Quarter: 2017Q3

REPORT INFORMATION
  Report Type: Spontaneous
  Country: US (occurrence: US)
  Receive Date: 20160907
  Receipt Date: 20170907
  Transmission Date: 20171127
  Serious: No
  Sender: FDA-Public Use
  Company Number: US-AUROBINDO-AUR-APL-2015-08217

PATIENT
  Sex: Female

DRUGS (1)
  1. HYDROCHLOROTHIAZIDE TABLETS [Suspect]
     Active Substance: HYDROCHLOROTHIAZIDE
     Indication: DIURETIC THERAPY
     Dosage: 12.5 MG, DAILY
     Route: 048
     Dates: start: 20150827

REACTIONS (5)
  - Weight decreased [Unknown]
  - Oxygen consumption decreased [Unknown]
  - Dizziness [Unknown]
  - Oedema [Unknown]
  - Dyspnoea [Unknown]
